FAERS Safety Report 6296263-0 (Version None)
Quarter: 2009Q3

REPORT INFORMATION
  Report Type: 
  Country: None (occurrence: None)
  Receive Date: 20090804
  Receipt Date: 20090723
  Transmission Date: 20100115
  Serious: Yes (Life-Threatening, Hospitalization, Disabling)
  Sender: FDA-Public Use
  Company Number: FR-PFIZER INC-2009244545

PATIENT
  Age: 59 Year

DRUGS (7)
  1. ADRIBLASTINE [Suspect]
     Indication: MULTIPLE MYELOMA
     Dosage: UNK
     Route: 042
     Dates: start: 20070501, end: 20070801
  2. VELCADE [Suspect]
     Indication: MULTIPLE MYELOMA
     Dosage: 3.5 MG
     Route: 042
     Dates: start: 20070801, end: 20071101
  3. VELCADE [Suspect]
     Dosage: UNK
     Route: 042
     Dates: start: 20080101
  4. ONCOVIN [Suspect]
     Indication: MULTIPLE MYELOMA
     Dosage: 1 MG
     Route: 042
     Dates: start: 20070501, end: 20070801
  5. DECTANCYL [Suspect]
     Indication: MULTIPLE MYELOMA
     Dosage: 0.5 %
     Route: 042
     Dates: start: 20070501
  6. DECTANCYL [Suspect]
     Dosage: UNK
     Route: 042
     Dates: start: 20080101
  7. REVLIMID [Suspect]
     Indication: MULTIPLE MYELOMA
     Dosage: 15 MG
     Dates: start: 20080214, end: 20080320

REACTIONS (1)
  - HEART DISEASE CONGENITAL [None]
